FAERS Safety Report 12773474 (Version 1)
Quarter: 2016Q3

REPORT INFORMATION
  Report Type: Spontaneous
  Country: US (occurrence: US)
  Receive Date: 20160922
  Receipt Date: 20160922
  Transmission Date: 20161109
  Serious: No
  Sender: FDA-Public Use
  Company Number: US-BIOGEN-2016BI00290829

PATIENT
  Sex: Female

DRUGS (1)
  1. PLEGRIDY [Suspect]
     Active Substance: PEGINTERFERON BETA-1A
     Indication: MULTIPLE SCLEROSIS
     Route: 065
     Dates: start: 20160630

REACTIONS (6)
  - Incoherent [Unknown]
  - Somnolence [Unknown]
  - Musculoskeletal disorder [Unknown]
  - Confusional state [Unknown]
  - General symptom [Unknown]
  - Insomnia [Not Recovered/Not Resolved]
